FAERS Safety Report 5369252-8 (Version None)
Quarter: 2007Q2

REPORT INFORMATION
  Report Type: 
  Country: None (occurrence: None)
  Receive Date: 20070625
  Receipt Date: 20070219
  Transmission Date: 20071010
  Serious: No
  Sender: FDA-Public Use
  Company Number: US-ASTRAZENECA-2007UW03206

PATIENT
  Age: 43 Year
  Sex: Male

DRUGS (8)
  1. CRESTOR [Suspect]
     Indication: BLOOD CHOLESTEROL INCREASED
     Route: 048
  2. NAPROXEN [Concomitant]
  3. LORAZEPAM [Concomitant]
  4. GLIMEPIRIDE [Concomitant]
  5. ESOMEPRAZOLE MAGNESIUM [Concomitant]
  6. ESGIC [Concomitant]
  7. AMLODIPINE [Concomitant]
  8. ALLOPURINOL [Concomitant]

REACTIONS (1)
  - OPTIC NEURITIS [None]
